APPROVED DRUG PRODUCT: IBUPROFEN
Active Ingredient: IBUPROFEN
Strength: 100MG/5ML
Dosage Form/Route: SUSPENSION;ORAL
Application: A215311 | Product #001 | TE Code: AB
Applicant: STRIDES PHARMA GLOBAL PTE LTD
Approved: May 27, 2022 | RLD: No | RS: No | Type: RX